FAERS Safety Report 8701289 (Version 2)
Quarter: 2012Q4

REPORT INFORMATION
  Report Type: 
  Country: US (occurrence: US)
  Receive Date: 20120802
  Receipt Date: 20120904
  Transmission Date: 20130627
  Serious: No
  Sender: FDA-Public Use
  Company Number: US-AMGEN-USASP2012047005

PATIENT
  Age: 50 Year
  Sex: Female
  Weight: 67.57 kg

DRUGS (2)
  1. ENBREL [Suspect]
     Indication: PSORIATIC ARTHROPATHY
     Dosage: 50 mg, qwk
     Route: 058
     Dates: start: 20120619, end: 20120724
  2. METHOTREXATE [Concomitant]
     Dosage: UNK

REACTIONS (1)
  - Drug ineffective [Recovering/Resolving]
